FAERS Safety Report 6195877-6 (Version None)
Quarter: 2009Q2

REPORT INFORMATION
  Report Type: 
  Country: None (occurrence: None)
  Receive Date: 20090520
  Receipt Date: 20090507
  Transmission Date: 20091009
  Serious: Yes (Hospitalization, Other)
  Sender: FDA-Public Use
  Company Number: US-ROCHE-433857

PATIENT
  Sex: Male
  Weight: 77.1 kg

DRUGS (1)
  1. ACCUTANE [Suspect]
     Indication: ACNE
     Route: 048
     Dates: start: 19910201, end: 19910801

REACTIONS (23)
  - AGGRESSION [None]
  - ANXIETY [None]
  - CARTILAGE INJURY [None]
  - COLITIS ULCERATIVE [None]
  - CROHN'S DISEASE [None]
  - DEPRESSION [None]
  - FLIGHT OF IDEAS [None]
  - GILBERT'S SYNDROME [None]
  - HAEMORRHOIDS [None]
  - HAND FRACTURE [None]
  - HEADACHE [None]
  - HYPOGLYCAEMIA [None]
  - INFLAMMATORY BOWEL DISEASE [None]
  - INSOMNIA [None]
  - IRRITABLE BOWEL SYNDROME [None]
  - LIVER FUNCTION TEST ABNORMAL [None]
  - OSTEOARTHRITIS [None]
  - PANIC DISORDER [None]
  - PERIARTHRITIS [None]
  - PROCTITIS [None]
  - ROTATOR CUFF SYNDROME [None]
  - SUICIDAL IDEATION [None]
  - UPPER RESPIRATORY TRACT INFECTION [None]
